FAERS Safety Report 8994468 (Version 1)
Quarter: 2013Q1

REPORT INFORMATION
  Report Type: Spontaneous
  Country: US (occurrence: US)
  Receive Date: 20130102
  Receipt Date: 20130102
  Transmission Date: 20140127
  Serious: No
  Sender: FDA-Public Use
  Company Number: US-AMGEN-USASP2012080097

PATIENT
  Age: 56 Year
  Sex: Female

DRUGS (25)
  1. ENBREL [Suspect]
     Indication: PRODUCT USED FOR UNKNOWN INDICATION
     Dosage: UNK
  2. AMITRIPTYLINE [Concomitant]
     Dosage: UNK
  3. AVAPRO [Concomitant]
     Dosage: UNK
  4. BACTRIM DS [Concomitant]
     Dosage: UNK
  5. BENADRYL                           /00000402/ [Concomitant]
     Dosage: UNK
  6. CALCIUM [Concomitant]
     Dosage: UNK
  7. CYMBALTA [Concomitant]
     Dosage: UNK
  8. EPIPEN [Concomitant]
     Dosage: UNK
  9. FOLIC ACID [Concomitant]
     Dosage: UNK
  10. GABAPENTIN [Concomitant]
     Dosage: UNK
  11. HYDROCHLOROTHIAZIDE [Concomitant]
     Dosage: UNK
  12. LAMICTAL [Concomitant]
     Dosage: UNK
  13. LIPITOR [Concomitant]
     Dosage: UNK
  14. METHOTREXATE [Concomitant]
     Dosage: UNK
  15. NEURONTIN [Concomitant]
     Dosage: UNK
  16. PREMPRO [Concomitant]
     Dosage: UNK
  17. RISPERIDONE [Concomitant]
     Dosage: UNK
  18. SIMVASTATIN [Concomitant]
     Dosage: UNK
  19. SULFASALAZINE [Concomitant]
     Dosage: UNK
  20. SYNTHROID [Concomitant]
     Dosage: UNK
  21. TEMAZEPAM [Concomitant]
     Dosage: UNK
  22. VITAMIN D /00107901/ [Concomitant]
     Dosage: UNK
  23. WELLBUTRIN [Concomitant]
     Dosage: UNK
  24. XANAX [Concomitant]
     Dosage: UNK
  25. ORENCIA [Concomitant]

REACTIONS (2)
  - Photopsia [Unknown]
  - Chromatopsia [Unknown]
